FAERS Safety Report 12293190 (Version 1)
Quarter: 2016Q2

REPORT INFORMATION
  Report Type: Report from Study
  Country: US (occurrence: US)
  Receive Date: 20160421
  Receipt Date: 20160421
  Transmission Date: 20160815
  Serious: No
  Sender: FDA-Public Use
  Company Number: US-AMGEN-USASL2016041451

PATIENT
  Age: 58 Year
  Sex: Male

DRUGS (1)
  1. REPATHA [Suspect]
     Active Substance: EVOLOCUMAB
     Indication: BLOOD CHOLESTEROL INCREASED
     Dosage: 140 MG, TWICE A MONTH
     Route: 065
     Dates: start: 20160314

REACTIONS (3)
  - Pain [Recovered/Resolved]
  - Pain in extremity [Recovered/Resolved]
  - Skin sensitisation [Unknown]

NARRATIVE: CASE EVENT DATE: 201603
